FAERS Safety Report 8419577-4 (Version None)
Quarter: 2012Q2

REPORT INFORMATION
  Report Type: 
  Country: None (occurrence: None)
  Receive Date: 20120607
  Receipt Date: 20120525
  Transmission Date: 20120825
  Serious: No
  Sender: FDA-Public Use
  Company Number: US-ASTRAZENECA-2012SE34715

PATIENT
  Age: 41 Year
  Sex: Female
  Weight: 122.5 kg

DRUGS (13)
  1. FOLIC ACID [Concomitant]
     Indication: FOLATE DEFICIENCY
  2. ARAVA [Suspect]
     Indication: RHEUMATOID ARTHRITIS
     Dosage: DAILY
     Route: 048
  3. OXYCODONE HCL [Concomitant]
     Indication: PAIN
  4. BYSTOLIC [Concomitant]
     Indication: CARDIAC DISORDER
  5. FLEXERIL [Concomitant]
     Indication: MUSCLE RELAXANT THERAPY
  6. CELEBREX [Suspect]
     Indication: RHEUMATOID ARTHRITIS
     Route: 048
  7. NEXIUM [Suspect]
     Indication: GASTROOESOPHAGEAL REFLUX DISEASE
     Route: 048
     Dates: start: 20080101
  8. HUMIRA [Suspect]
     Indication: RHEUMATOID ARTHRITIS
     Route: 065
  9. VICTOZA [Concomitant]
     Indication: DIABETES MELLITUS
  10. ZOCOR [Concomitant]
     Indication: BLOOD CHOLESTEROL ABNORMAL
  11. TRICOR [Concomitant]
     Indication: BLOOD CHOLESTEROL ABNORMAL
  12. CYMBALTA [Concomitant]
     Indication: PAIN
  13. ASPIRIN [Concomitant]
     Indication: ANTICOAGULANT THERAPY

REACTIONS (9)
  - SEASONAL ALLERGY [None]
  - DYSPEPSIA [None]
  - OESOPHAGEAL PAIN [None]
  - DRY THROAT [None]
  - FLUID RETENTION [None]
  - DRUG DOSE OMISSION [None]
  - CHEST PAIN [None]
  - DYSPHONIA [None]
  - GASTROOESOPHAGEAL REFLUX DISEASE [None]
